FAERS Safety Report 4474070-9 (Version None)
Quarter: 2004Q4

REPORT INFORMATION
  Report Type: 
  Country: None (occurrence: None)
  Receive Date: 20041008
  Receipt Date: 20040928
  Transmission Date: 20050328
  Serious: No
  Sender: FDA-Public Use
  Company Number: A0527656A

PATIENT
  Age: 68 Year
  Sex: Female

DRUGS (7)
  1. NICORETTE [Suspect]
     Indication: EX-SMOKER
     Dosage: 4 MG / FIVE TIMES PER DAY/ TRANSB
     Route: 002
     Dates: start: 20030701
  2. CLOPIDOGREL BISULFATE [Concomitant]
  3. ASPIRIN [Concomitant]
  4. FRUSEMIDE [Concomitant]
  5. LISINOPRIL [Concomitant]
  6. SIMVASTATIN [Concomitant]
  7. RISEDRONIC ACID [Concomitant]

REACTIONS (2)
  - ABDOMINAL ADHESIONS [None]
  - ARTHRALGIA [None]
